FAERS Safety Report 16359100 (Version 1)
Quarter: 2019Q2

REPORT INFORMATION
  Report Type: Spontaneous
  Country: US (occurrence: US)
  Receive Date: 20190527
  Receipt Date: 20190527
  Transmission Date: 20190711
  Serious: No
  Sender: FDA-Public Use
  Company Number: US-SA-2019SA138785

PATIENT
  Age: 69 Year
  Sex: Female

DRUGS (2)
  1. DUPIXENT [Suspect]
     Active Substance: DUPILUMAB
     Indication: ECZEMA
     Dosage: 600 MG, 1X
     Dates: start: 201806, end: 201806
  2. DUPIXENT [Suspect]
     Active Substance: DUPILUMAB
     Dosage: 300 MG, QOW
     Dates: start: 2018, end: 2019

REACTIONS (8)
  - Vision blurred [Recovered/Resolved]
  - Hirsutism [Unknown]
  - Papilloma [Recovered/Resolved]
  - Pruritus [Unknown]
  - Eczema [Unknown]
  - Blood testosterone increased [Not Recovered/Not Resolved]
  - Hair texture abnormal [Recovering/Resolving]
  - Disease recurrence [Unknown]

NARRATIVE: CASE EVENT DATE: 2018
